FAERS Safety Report 12431589 (Version 1)
Quarter: 2016Q2

REPORT INFORMATION
  Report Type: Spontaneous
  Country: US (occurrence: None)
  Receive Date: 20160602
  Receipt Date: 20160602
  Transmission Date: 20160815
  Serious: No
  Sender: FDA-Public Use
  Company Number: None

PATIENT
  Age: 5 Year
  Sex: Female
  Weight: 18.14 kg

DRUGS (4)
  1. PROBIOTIC [Concomitant]
     Active Substance: PROBIOTICS NOS
  2. CEPHALEXIN FOR ORAL SUSPENSION LUPIN [Suspect]
     Active Substance: CEPHALEXIN
     Indication: PHARYNGITIS STREPTOCOCCAL
     Dosage: 2 TEASPOON (S) TWICE A DAY TAKEN BY MOUTH
     Route: 048
     Dates: start: 20160523, end: 20160601
  3. MULTIVITAMIN [Concomitant]
     Active Substance: VITAMINS
  4. FISH OIL [Concomitant]
     Active Substance: FISH OIL

REACTIONS (2)
  - Product packaging quantity issue [None]
  - Incorrect drug administration duration [None]

NARRATIVE: CASE EVENT DATE: 20160601
